FAERS Safety Report 14374219 (Version 2)
Quarter: 2018Q2

REPORT INFORMATION
  Report Type: Spontaneous
  Country: FR (occurrence: FR)
  Receive Date: 20180111
  Receipt Date: 20180514
  Transmission Date: 20180711
  Serious: Yes (Other)
  Sender: FDA-Public Use
  Company Number: FR-MERCK KGAA-2039884

PATIENT
  Age: 65 Year
  Sex: Female
  Weight: 67 kg

DRUGS (4)
  1. NOVOTHYROX [Suspect]
     Active Substance: LEVOTHYROXINE SODIUM
     Indication: HYPOTHYROIDISM
     Route: 048
     Dates: start: 20171110, end: 20180101
  2. KALEORID [Concomitant]
     Active Substance: POTASSIUM CHLORIDE
  3. BETASERC [Concomitant]
     Active Substance: BETAHISTINE
  4. TANGANIL [Concomitant]
     Active Substance: ACETYLLEUCINE

REACTIONS (4)
  - Pain in extremity [Recovered/Resolved]
  - Palpitations [Not Recovered/Not Resolved]
  - Anxiety [Not Recovered/Not Resolved]
  - Insomnia [Not Recovered/Not Resolved]

NARRATIVE: CASE EVENT DATE: 20171204
